FAERS Safety Report 8536844-4 (Version None)
Quarter: 2012Q3

REPORT INFORMATION
  Report Type: 
  Country: None (occurrence: None)
  Receive Date: 20120725
  Receipt Date: 20120717
  Transmission Date: 20120928
  Serious: Yes (Other)
  Sender: FDA-Public Use
  Company Number: JP-VERTEX PHARMACEUTICALS INC.-AE-2012-010716

PATIENT
  Age: 67 Year
  Sex: Male

DRUGS (7)
  1. XYZAL [Concomitant]
     Route: 048
     Dates: start: 20120604
  2. TELAVIC (TELAPREVIR) [Suspect]
     Indication: HEPATITIS C
     Route: 048
     Dates: start: 20120604
  3. TAMSULOSIN HCL [Concomitant]
     Route: 048
  4. RIBAVIRIN [Concomitant]
     Indication: HEPATITIS C
     Route: 048
     Dates: start: 20120604, end: 20120618
  5. PEGINTERFERON ALFA-2B [Concomitant]
     Indication: HEPATITIS C
     Route: 058
     Dates: start: 20120604
  6. LOSARTAN POTASSIUM AND HYDROCHLOROTHIAZIDE [Concomitant]
     Route: 048
  7. RIBAVIRIN [Concomitant]
     Route: 048
     Dates: start: 20120619

REACTIONS (1)
  - WHITE BLOOD CELL COUNT DECREASED [None]
